FAERS Safety Report 4840207-2 (Version None)
Quarter: 2005Q4

REPORT INFORMATION
  Report Type: 
  Country: None (occurrence: None)
  Receive Date: 20051125
  Receipt Date: 20051110
  Transmission Date: 20060501
  Serious: Yes (Hospitalization)
  Sender: FDA-Public Use
  Company Number: 213996

PATIENT
  Age: 64 Year
  Sex: Female
  Weight: 66.6 kg

DRUGS (8)
  1. BEVACIZUMAB OR PLACEBO (BEVACIXUMAB OR PLACEBO) PWDR + SOLVENT, INFUSI [Suspect]
     Indication: CLEAR CELL CARCINOMA OF THE KIDNEY
     Dosage: 10 MG/KG, Q2W; INTRAVENOUS
     Route: 042
     Dates: start: 20040824, end: 20050414
  2. INTERFERON ALFA-2A (INTERFERON ALFA-2A) [Suspect]
     Indication: CLEAR CELL CARCINOMA OF THE KIDNEY
     Dosage: 9 MIU, Q3W, SUBCUTANEOUS
     Route: 058
     Dates: start: 20040824
  3. DEXAMETHASONE [Concomitant]
  4. COVERSYL (PERINDOPRIL) [Concomitant]
  5. XALATAN [Concomitant]
  6. CARDIZEM [Concomitant]
  7. METOCLOPRAMIDE (METOCLOPRAMIDE HYDROCHLORIDE) [Concomitant]
  8. MORPHINE [Concomitant]

REACTIONS (13)
  - BLOOD PRESSURE INCREASED [None]
  - CONSTIPATION [None]
  - DIZZINESS [None]
  - HEADACHE [None]
  - LARGE INTESTINE PERFORATION [None]
  - PELVIC ABSCESS [None]
  - POSTOPERATIVE WOUND COMPLICATION [None]
  - PYREXIA [None]
  - SMALL INTESTINAL OBSTRUCTION [None]
  - VOMITING [None]
  - WOUND DECOMPOSITION [None]
  - WOUND INFECTION PSEUDOMONAS [None]
  - WOUND INFECTION STAPHYLOCOCCAL [None]
